FAERS Safety Report 23761743 (Version 1)
Quarter: 2024Q2

REPORT INFORMATION
  Report Type: Spontaneous
  Country: US (occurrence: None)
  Receive Date: 20240418
  Receipt Date: 20240418
  Transmission Date: 20240716
  Serious: Yes (Hospitalization)
  Sender: FDA-Public Use
  Company Number: None

PATIENT
  Sex: Female

DRUGS (7)
  1. MYCOPHENOLIC ACID [Suspect]
     Active Substance: MYCOPHENOLIC ACID
     Indication: Renal transplant
     Dosage: 1 MG BID ORAL ?
     Route: 048
     Dates: start: 20170718
  2. TACROLIMUS [Suspect]
     Active Substance: TACROLIMUS
     Indication: Renal transplant
     Dosage: 1 MG BID ORAL?
     Route: 048
     Dates: start: 20170718
  3. FAMOTIDINE [Concomitant]
     Active Substance: FAMOTIDINE
     Dates: start: 20170718
  4. LANTUS [Concomitant]
     Active Substance: INSULIN GLARGINE
     Dates: start: 20010119
  5. CALCIUM+VIT D [Concomitant]
     Dates: start: 20221205
  6. VITAMINS [Concomitant]
     Active Substance: VITAMINS
     Dates: start: 20221205
  7. VITAMIN D [Concomitant]
     Active Substance: VITAMIN D NOS
     Dates: start: 20230525

REACTIONS (4)
  - Cystitis [None]
  - Kidney infection [None]
  - Influenza [None]
  - Pneumonia [None]
